FAERS Safety Report 4737484-5 (Version None)
Quarter: 2005Q3

REPORT INFORMATION
  Report Type: 
  Country: None (occurrence: None)
  Receive Date: 20050809
  Receipt Date: 20050713
  Transmission Date: 20060218
  Serious: No
  Sender: FDA-Public Use
  Company Number: US-GLAXOSMITHKLINE-A0566020A

PATIENT
  Sex: Female

DRUGS (3)
  1. COMMIT [Suspect]
  2. NICODERM CQ [Suspect]
  3. NICODERM CQ [Suspect]

REACTIONS (9)
  - APPLICATION SITE ERYTHEMA [None]
  - APPLICATION SITE SWELLING [None]
  - BREATH ODOUR [None]
  - DIZZINESS [None]
  - FEAR [None]
  - FEELING ABNORMAL [None]
  - HYPERSENSITIVITY [None]
  - MALAISE [None]
  - URINE ODOUR ABNORMAL [None]
